FAERS Safety Report 20421319 (Version 2)
Quarter: 2022Q1

REPORT INFORMATION
  Report Type: Spontaneous
  Country: MY (occurrence: None)
  Receive Date: 20220203
  Receipt Date: 20220211
  Transmission Date: 20220423
  Serious: Yes (Disabling, Other)
  Sender: FDA-Public Use
  Company Number: 2022A053457

PATIENT
  Age: 75 Year
  Sex: Male

DRUGS (1)
  1. TAGRISSO [Suspect]
     Active Substance: OSIMERTINIB
     Indication: EGFR gene mutation
     Route: 048
     Dates: start: 202003, end: 202201

REACTIONS (2)
  - Metastases to meninges [Recovered/Resolved with Sequelae]
  - Cranial nerve palsies multiple [Unknown]

NARRATIVE: CASE EVENT DATE: 20220125
